FAERS Safety Report 24209724 (Version 3)
Quarter: 2024Q3

REPORT INFORMATION
  Report Type: Spontaneous
  Country: PR (occurrence: PR)
  Receive Date: 20240814
  Receipt Date: 20240904
  Transmission Date: 20241017
  Serious: Yes (Hospitalization)
  Sender: KARYOPHARM THERAPEUTICS
  Company Number: PR-KARYOPHARM-2024KPT001415

PATIENT

DRUGS (11)
  1. XPOVIO [Suspect]
     Active Substance: SELINEXOR
     Indication: Plasma cell myeloma
     Dosage: 100 MG, 2X/WEEK, DAYS 1 AND 3 WEEKLY FOR FOUR WEEKS.
     Route: 048
     Dates: start: 20240611
  2. XPOVIO [Suspect]
     Active Substance: SELINEXOR
     Dosage: 80 MG, 2X/WEEK, ON DAYS 1, 3, 8, 10, 15, 17, 22 AND 24 OF THE CYCLE, EVERY 28 DAYS.
     Route: 048
     Dates: start: 20240826
  3. XPOVIO [Suspect]
     Active Substance: SELINEXOR
     Dosage: 80 MG, WEEKLY
     Route: 048
     Dates: start: 2024, end: 2024
  4. XPOVIO [Suspect]
     Active Substance: SELINEXOR
     Dosage: 100 MG, WEEKLY
     Route: 048
     Dates: start: 2024
  5. ZOLEDRONIC ACID [Concomitant]
     Active Substance: ZOLEDRONIC ACID
     Dosage: UNK
     Dates: start: 20190226
  6. VELCADE [Concomitant]
     Active Substance: BORTEZOMIB
     Dosage: UNK
     Dates: start: 20211001
  7. DARZALEX FASPRO [Concomitant]
     Active Substance: DARATUMUMAB\HYALURONIDASE-FIHJ
     Dosage: UNK
     Dates: start: 20211001
  8. SULFAMETHOXAZOLE AND TRIMETHOPRIM [Concomitant]
     Active Substance: SULFAMETHOXAZOLE\TRIMETHOPRIM
  9. DEXAMETHASONE [Concomitant]
     Active Substance: DEXAMETHASONE
     Dosage: UNK
     Dates: start: 20190226
  10. NEUPOGEN [Concomitant]
     Active Substance: FILGRASTIM
     Dosage: UNK
     Dates: start: 20220414
  11. ERYTHROPOIETIN [Concomitant]
     Active Substance: ERYTHROPOIETIN
     Dosage: UNK
     Dates: start: 20240515

REACTIONS (6)
  - Renal failure [Unknown]
  - Laboratory test abnormal [Unknown]
  - Haemoglobin decreased [Not Recovered/Not Resolved]
  - Platelet count decreased [Not Recovered/Not Resolved]
  - Dyspnoea [Unknown]
  - Blood sodium decreased [Unknown]

NARRATIVE: CASE EVENT DATE: 20240101
